FAERS Safety Report 12969356 (Version 2)
Quarter: 2017Q1

REPORT INFORMATION
  Report Type: Report from Study
  Country: FR (occurrence: FR)
  Receive Date: 20161123
  Receipt Date: 20170111
  Transmission Date: 20170428
  Serious: Yes (Hospitalization)
  Sender: FDA-Public Use
  Company Number: FR-PFIZER INC-2016534584

PATIENT
  Age: 69 Year
  Sex: Male

DRUGS (24)
  1. BISOCE [Concomitant]
     Active Substance: BISOPROLOL
     Dosage: 1 DF, DAILY
  2. KARDEGIC [Concomitant]
     Active Substance: ASPIRIN LYSINE
     Indication: URINARY TRACT INFECTION
     Dosage: UNK
  3. RAMIPRIL. [Concomitant]
     Active Substance: RAMIPRIL
     Dosage: 1 DF, DAILY
  4. FASTURTEC [Concomitant]
     Active Substance: RASBURICASE
     Indication: TUMOUR LYSIS SYNDROME
     Dosage: UNK
     Dates: start: 201610
  5. ARACYTINE [Suspect]
     Active Substance: CYTARABINE
     Dosage: 1200 MG DAILY CYCLIC (FROM DAY 5 TO DAY 7)
     Dates: start: 20161009
  6. BICARBONATE [Concomitant]
     Active Substance: BICARBONATE ION
     Dosage: UNK, 3X/DAY
  7. LASILIX /00032601/ [Concomitant]
     Active Substance: FUROSEMIDE
     Dosage: 1 DF, DAILY
  8. VALACICLOVIR [Concomitant]
     Active Substance: VALACYCLOVIR HYDROCHLORIDE
     Dosage: 1 DF, 2X/DAY
  9. FUNGIZONE [Concomitant]
     Active Substance: AMPHOTERICIN B
     Dosage: UNK UNK, 3X/DAY
  10. G-CSF [Concomitant]
     Active Substance: GRANULOCYTE COLONY-STIMULATING FACTOR NOS
     Dosage: UNK
     Dates: start: 20161018
  11. CASPOFUNGIN [Concomitant]
     Active Substance: CASPOFUNGIN
     Indication: FEBRILE BONE MARROW APLASIA
  12. OFLOCET /00731801/ [Concomitant]
     Active Substance: OFLOXACIN
     Indication: URINARY TRACT INFECTION
     Dosage: 2 DF, DAILY
  13. XATRAL LP [Concomitant]
     Active Substance: ALFUZOSIN
     Dosage: 1 DF, DAILY
  14. MYLOTARG [Suspect]
     Active Substance: GEMTUZUMAB OZOGAMICIN
     Indication: ACUTE MYELOID LEUKAEMIA
     Dosage: 5 MG CYCLIC (DAY 1 AND DAY 4)
     Dates: start: 20161005
  15. ARACYTINE [Suspect]
     Active Substance: CYTARABINE
     Indication: ACUTE MYELOID LEUKAEMIA
     Dosage: 1200 MG DAILY CYCLIC (FROM DAY 1 TO DAY 3)
     Dates: start: 20161005, end: 20161007
  16. ARACYTINE [Suspect]
     Active Substance: CYTARABINE
     Dosage: 1500 MG DAILY CYCLIC (ON DAY 4)
     Dates: start: 20161008, end: 20161008
  17. MONOTILDIEM [Concomitant]
     Active Substance: DILTIAZEM
     Indication: HYPERTENSION
  18. EUPANTOL [Concomitant]
     Active Substance: PANTOPRAZOLE SODIUM
     Dosage: 1 DF, DAILY
  19. FORTUM /00559701/ [Concomitant]
     Active Substance: CEFTAZIDIME
     Indication: FEBRILE BONE MARROW APLASIA
  20. VANCOMYCIN [Concomitant]
     Active Substance: VANCOMYCIN
     Indication: FEBRILE BONE MARROW APLASIA
  21. CO-RENITEC [Concomitant]
     Active Substance: ENALAPRIL\HYDROCHLOROTHIAZIDE
     Indication: HYPERTENSION
  22. BISOCE [Concomitant]
     Active Substance: BISOPROLOL
     Indication: ARRHYTHMIA
     Dosage: 1 DF, 2X/DAY
  23. IMOVANE [Concomitant]
     Active Substance: ZOPICLONE
     Dosage: 1 DF, DAILY
  24. XATRAL [Concomitant]
     Active Substance: ALFUZOSIN
     Dosage: 1 DF, DAILY

REACTIONS (1)
  - Arrhythmia [Not Recovered/Not Resolved]

NARRATIVE: CASE EVENT DATE: 20161025
